FAERS Safety Report 4838729-3 (Version None)
Quarter: 2005Q4

REPORT INFORMATION
  Report Type: 
  Country: None (occurrence: None)
  Receive Date: 20051024
  Receipt Date: 20050802
  Transmission Date: 20060501
  Serious: No
  Sender: FDA-Public Use
  Company Number: 215925

PATIENT
  Age: 41 Year
  Sex: Female
  Weight: 72.1 kg

DRUGS (6)
  1. XOLAIR [Suspect]
     Indication: ASTHMA
     Dosage: 375 MG, Q2W, SUBCUTANEOUS
     Route: 058
     Dates: start: 20050617, end: 20050705
  2. PREDNISONE [Concomitant]
  3. SINGULAIR [Concomitant]
  4. ADVAIR DISKUS 100/50 [Concomitant]
  5. XOPENEX [Concomitant]
  6. ZYRTEC [Concomitant]

REACTIONS (1)
  - FATIGUE [None]
